FAERS Safety Report 12186895 (Version 2)
Quarter: 2016Q2

REPORT INFORMATION
  Report Type: Spontaneous
  Country: DE (occurrence: DE)
  Receive Date: 20160317
  Receipt Date: 20160428
  Transmission Date: 20160815
  Serious: Yes (Death, Life-Threatening)
  Sender: FDA-Public Use
  Company Number: DE-009507513-1603DEU006926

PATIENT
  Age: 17 Year
  Sex: Male
  Weight: 76 kg

DRUGS (5)
  1. IBUPROFEN. [Concomitant]
     Active Substance: IBUPROFEN
     Indication: HEADACHE
     Dosage: 400 UNITS NOT PROVIDED, PRN
  2. HOGGAR NIGHT [Concomitant]
     Dosage: 3 TO 5 DAYS, PRN
  3. SINGULAIR [Suspect]
     Active Substance: MONTELUKAST SODIUM
     Indication: ASTHMA
     Dosage: 5 MG, QD
     Route: 048
     Dates: start: 2010
  4. SINGULAIR [Suspect]
     Active Substance: MONTELUKAST SODIUM
     Dosage: 10 MG, QD
     Route: 048
     Dates: start: 2010, end: 2015
  5. VIANI [Concomitant]
     Active Substance: FLUTICASONE PROPIONATE\SALMETEROL XINAFOATE
     Indication: ASTHMA EXERCISE INDUCED
     Dosage: ROUTE REPORTED AS: INHALATOR
     Route: 055
     Dates: start: 2006

REACTIONS (11)
  - Irritability [Unknown]
  - Completed suicide [Fatal]
  - Fatigue [Unknown]
  - Headache [Unknown]
  - Appendicitis [Unknown]
  - Insomnia [Unknown]
  - Muscle spasms [Unknown]
  - Tremor [Unknown]
  - Nausea [Unknown]
  - Restlessness [Unknown]
  - Aggression [Unknown]

NARRATIVE: CASE EVENT DATE: 20150723
